FAERS Safety Report 25768306 (Version 1)
Quarter: 2025Q3

REPORT INFORMATION
  Report Type: Spontaneous
  Country: US (occurrence: US)
  Receive Date: 20250905
  Receipt Date: 20250905
  Transmission Date: 20251021
  Serious: No
  Sender: DOMPE FARMACEUTICI
  Company Number: US-FARMAPROD-202506-2040

PATIENT
  Sex: Female

DRUGS (8)
  1. OXERVATE [Suspect]
     Active Substance: CENEGERMIN-BKBJ
     Indication: Neurotrophic keratopathy
     Route: 047
     Dates: start: 20250606
  2. MAGNESIUM [Concomitant]
     Active Substance: MAGNESIUM
  3. VITAMIN B12 [Concomitant]
     Active Substance: CYANOCOBALAMIN
  4. RESTASIS [Concomitant]
     Active Substance: CYCLOSPORINE
  5. FISH OIL [Concomitant]
     Active Substance: FISH OIL
  6. NEXIUM [Concomitant]
     Active Substance: ESOMEPRAZOLE MAGNESIUM
  7. CRESTOR [Concomitant]
     Active Substance: ROSUVASTATIN CALCIUM
  8. NITROFURANTOIN [Concomitant]
     Active Substance: NITROFURANTOIN

REACTIONS (1)
  - Photophobia [Unknown]
